FAERS Safety Report 18749569 (Version 1)
Quarter: 2021Q1

REPORT INFORMATION
  Report Type: Spontaneous
  Country: US (occurrence: US)
  Receive Date: 20210117
  Receipt Date: 20210117
  Transmission Date: 20210419
  Serious: No
  Sender: FDA-Public Use
  Company Number: US-ASTRAZENECA-2021A002805

PATIENT
  Sex: Female

DRUGS (2)
  1. STEROIDS [Concomitant]
     Active Substance: UNSPECIFIED INGREDIENT
     Indication: LICHEN PLANUS
     Route: 048
  2. FASENRA [Suspect]
     Active Substance: BENRALIZUMAB
     Indication: ASTHMA
     Route: 058
     Dates: start: 2020

REACTIONS (1)
  - Lichen planus [Not Recovered/Not Resolved]
